FAERS Safety Report 22270172 (Version 1)
Quarter: 2023Q2

REPORT INFORMATION
  Report Type: Spontaneous
  Country: US (occurrence: None)
  Receive Date: 20230428
  Receipt Date: 20230428
  Transmission Date: 20230721
  Serious: No
  Sender: FDA-Public Use
  Company Number: None

PATIENT
  Age: 70 Year
  Sex: Male
  Weight: 102.87 kg

DRUGS (9)
  1. CAPECITABINE [Suspect]
     Active Substance: CAPECITABINE
     Indication: Colon cancer
     Dosage: FREQUENCY : TWICE A DAY;?
     Route: 048
  2. CARVEDILOL [Concomitant]
     Active Substance: CARVEDILOL
  3. ELIQUIS [Concomitant]
  4. FERROUS SULFATE [Concomitant]
  5. JARDIANCE [Concomitant]
  6. LISINOPRIL-HYDROCHLOROTHIAZIDE [Concomitant]
  7. METFORMIN [Concomitant]
  8. SOTALOL HCI [Concomitant]
  9. TAMSULOSIN [Concomitant]

REACTIONS (1)
  - Palmar-plantar erythrodysaesthesia syndrome [None]
